FAERS Safety Report 23139668 (Version 2)
Quarter: 2023Q4

REPORT INFORMATION
  Report Type: Spontaneous
  Country: FR (occurrence: FR)
  Receive Date: 20231102
  Receipt Date: 20231116
  Transmission Date: 20240110
  Serious: Yes (Other)
  Sender: FDA-Public Use
  Company Number: FR-TEVA-2023-FR-2940753

PATIENT
  Age: 42 Year
  Sex: Female

DRUGS (12)
  1. CARBOPLATIN [Suspect]
     Active Substance: CARBOPLATIN
     Indication: Mucoepidermoid carcinoma
     Dosage: RECEIVED UNDER DOUBLET CHEMOTHERAPY
     Route: 065
  2. CARBOPLATIN [Suspect]
     Active Substance: CARBOPLATIN
     Indication: Lung neoplasm malignant
  3. PACLITAXEL [Suspect]
     Active Substance: PACLITAXEL
     Indication: Mucoepidermoid carcinoma
     Dosage: RECEIVED UNDER DOUBLET CHEMOTHERAPY
     Route: 065
  4. PACLITAXEL [Suspect]
     Active Substance: PACLITAXEL
     Indication: Lung neoplasm malignant
  5. ALECTINIB [Suspect]
     Active Substance: ALECTINIB
     Indication: Mucoepidermoid carcinoma
     Dosage: 1200 MILLIGRAM DAILY; 600MG TWICE DAILY
     Route: 065
  6. ALECTINIB [Suspect]
     Active Substance: ALECTINIB
     Indication: Lung neoplasm malignant
  7. LORLATINIB [Suspect]
     Active Substance: LORLATINIB
     Indication: Mucoepidermoid carcinoma
     Dosage: 100 MILLIGRAM DAILY;
     Route: 065
  8. LORLATINIB [Suspect]
     Active Substance: LORLATINIB
     Indication: Lung neoplasm malignant
  9. BRIGATINIB [Suspect]
     Active Substance: BRIGATINIB
     Indication: Mucoepidermoid carcinoma
     Dosage: 90 MILLIGRAM DAILY;
     Route: 065
  10. BRIGATINIB [Suspect]
     Active Substance: BRIGATINIB
     Indication: Lung neoplasm malignant
     Dosage: 180 MILLIGRAM DAILY;
     Route: 065
  11. OSIMERTINIB [Suspect]
     Active Substance: OSIMERTINIB
     Indication: Mucoepidermoid carcinoma
     Dosage: 80 MILLIGRAM DAILY;
     Route: 065
  12. OSIMERTINIB [Suspect]
     Active Substance: OSIMERTINIB
     Indication: Lung neoplasm malignant

REACTIONS (2)
  - Multiple-drug resistance [Unknown]
  - Drug ineffective [Unknown]
